FAERS Safety Report 7975744-5 (Version None)
Quarter: 2011Q4

REPORT INFORMATION
  Report Type: 
  Country: None (occurrence: None)
  Receive Date: 20111213
  Receipt Date: 20110921
  Transmission Date: 20120403
  Serious: No
  Sender: FDA-Public Use
  Company Number: US-AMGEN-USASP2011048903

PATIENT
  Age: 52 Year
  Sex: Female

DRUGS (2)
  1. ENBREL [Suspect]
     Indication: RHEUMATOID ARTHRITIS
     Dosage: 50 MG, QWK
     Dates: start: 20030101
  2. METHOTREXATE [Concomitant]
     Dosage: 6 MG, QWK

REACTIONS (4)
  - INJECTION SITE REACTION [None]
  - INJECTION SITE ERYTHEMA [None]
  - OSTEOARTHRITIS [None]
  - INJECTION SITE PRURITUS [None]
